FAERS Safety Report 10618149 (Version 1)
Quarter: 2014Q4

REPORT INFORMATION
  Report Type: Spontaneous
  Country: US (occurrence: US)
  Receive Date: 20141202
  Receipt Date: 20141202
  Transmission Date: 20150529
  Serious: Yes (Other)
  Sender: FDA-Public Use
  Company Number: US-ASTRAZENECA-2014SE90412

PATIENT
  Sex: Female

DRUGS (2)
  1. TENORMIN [Suspect]
     Active Substance: ATENOLOL
     Indication: PALPITATIONS
     Dosage: TAKES A HALF OF A 25 MG IN THE MORNING
     Route: 048
  2. TENORMIN [Suspect]
     Active Substance: ATENOLOL
     Indication: PALPITATIONS
     Dosage: TAKES HALF OF A HALF AT NIGHT
     Route: 048

REACTIONS (4)
  - Hypertension [Unknown]
  - Product use issue [Recovered/Resolved with Sequelae]
  - Hip fracture [Unknown]
  - Off label use [Not Recovered/Not Resolved]
